FAERS Safety Report 9306168 (Version 2)
Quarter: 2013Q2

REPORT INFORMATION
  Report Type: Spontaneous
  Country: US (occurrence: US)
  Receive Date: 20130523
  Receipt Date: 20130614
  Transmission Date: 20140414
  Serious: Yes (Other)
  Sender: FDA-Public Use
  Company Number: US-PFIZER INC-2013156947

PATIENT
  Age: 76 Year
  Sex: Male

DRUGS (8)
  1. SUTENT [Suspect]
     Indication: ADRENAL GLAND CANCER
     Dosage: 37.5 MG, 1X/DAY (DAILY, FOR 4 WEEKS EVERY 6 WEEKS)
     Route: 048
     Dates: start: 20130306
  2. SUTENT [Suspect]
     Dosage: 25 MG, 1X/DAY (DAILY, 2 WEEK ON, 2 WEEK OFF )
     Route: 048
     Dates: start: 20130523
  3. ATENOLOL [Concomitant]
     Dosage: UNK
  4. ENALAPRIL [Concomitant]
     Dosage: UNK
  5. GLUCOPHAGE [Concomitant]
     Dosage: UNK
  6. HYDROCHLOROTHIAZIDE [Concomitant]
     Dosage: UNK
  7. LEVOTHYROXINE [Concomitant]
     Dosage: UNK
  8. PRAVASTATIN [Concomitant]
     Dosage: UNK

REACTIONS (4)
  - Dry mouth [Unknown]
  - Abdominal discomfort [Unknown]
  - Dizziness [Unknown]
  - Off label use [Unknown]
